FAERS Safety Report 8365306-2 (Version None)
Quarter: 2012Q2

REPORT INFORMATION
  Report Type: 
  Country: None (occurrence: None)
  Receive Date: 20120516
  Receipt Date: 20120507
  Transmission Date: 20120825
  Serious: Yes (Death)
  Sender: FDA-Public Use
  Company Number: US-ALLERGAN-1114952US

PATIENT
  Age: 18 Year
  Sex: Male

DRUGS (6)
  1. FISH OIL [Concomitant]
     Indication: PRODUCT USED FOR UNKNOWN INDICATION
  2. ACZONE [Suspect]
     Indication: ACNE
     Dosage: 1 DF, QAM
     Route: 061
     Dates: start: 20110627, end: 20111020
  3. MULTI-VITAMIN [Concomitant]
     Indication: PRODUCT USED FOR UNKNOWN INDICATION
  4. BACTRIM DS [Concomitant]
     Indication: ACNE
     Dosage: 1 DF, BID
     Route: 048
     Dates: start: 20110627, end: 20111020
  5. ZIANA [Concomitant]
     Indication: ACNE
     Dosage: 1 DF, QD
     Route: 061
     Dates: start: 20110627
  6. CALCIUM [Concomitant]
     Indication: PRODUCT USED FOR UNKNOWN INDICATION

REACTIONS (2)
  - COMPLETED SUICIDE [None]
  - DRUG INEFFECTIVE [None]
